FAERS Safety Report 9913504 (Version 1)
Quarter: 2014Q1

REPORT INFORMATION
  Report Type: Spontaneous
  Country: US (occurrence: None)
  Receive Date: 20140214
  Receipt Date: 20140214
  Transmission Date: 20141002
  Serious: Yes (Hospitalization)
  Sender: FDA-Public Use
  Company Number: AUR-APL-2014-01492

PATIENT
  Age: 64 Year
  Sex: Female

DRUGS (3)
  1. HYDROCHLOROTHIAZIDE [Suspect]
     Indication: PRODUCT USED FOR UNKNOWN INDICATION
  2. ENBREL (ETANERCEPT) [Suspect]
     Indication: RHEUMATOID ARTHRITIS
     Dates: start: 20120115, end: 201208
  3. LASIX (FUROSEMIDE) [Suspect]
     Indication: PRODUCT USED FOR UNKNOWN INDICATION

REACTIONS (21)
  - Osteonecrosis [None]
  - Pain [None]
  - Mobility decreased [None]
  - Economic problem [None]
  - Therapy cessation [None]
  - Rheumatoid arthritis [None]
  - Disease recurrence [None]
  - Procedural pain [None]
  - Anaemia [None]
  - Muscular weakness [None]
  - Fall [None]
  - Cerebrovascular accident [None]
  - Dysarthria [None]
  - Transient ischaemic attack [None]
  - Impaired self-care [None]
  - Atrial fibrillation [None]
  - Drug hypersensitivity [None]
  - Death of relative [None]
  - Emotional distress [None]
  - Hypokinesia [None]
  - Feeling abnormal [None]
